FAERS Safety Report 21393611 (Version 2)
Quarter: 2022Q4

REPORT INFORMATION
  Report Type: Report from Study
  Country: CN (occurrence: CN)
  Receive Date: 20220929
  Receipt Date: 20221108
  Transmission Date: 20230112
  Serious: Yes (Other)
  Sender: FDA-Public Use
  Company Number: CN-BIOGEN-2022BI01157556

PATIENT
  Age: 10 Month
  Sex: Male
  Weight: 5.72 kg

DRUGS (6)
  1. SPINRAZA [Suspect]
     Active Substance: NUSINERSEN
     Indication: Spinal muscular atrophy
     Dosage: DATE OF MOST RECENT TREATMENT PRIOR TO EVENT: 13 JUL 2022
     Route: 050
     Dates: start: 20220629
  2. SPINRAZA [Suspect]
     Active Substance: NUSINERSEN
     Route: 050
     Dates: start: 20220713
  3. SPINRAZA [Suspect]
     Active Substance: NUSINERSEN
     Route: 050
     Dates: start: 20220727
  4. SPINRAZA [Suspect]
     Active Substance: NUSINERSEN
     Route: 050
     Dates: start: 20220831
  5. VITAMIN AD [Concomitant]
     Active Substance: PETROLATUM
     Indication: Product used for unknown indication
     Route: 050
     Dates: start: 202109
  6. CALCIUM CARBONATE [Concomitant]
     Active Substance: CALCIUM CARBONATE
     Indication: Product used for unknown indication
     Dosage: PARTICLES
     Route: 050
     Dates: start: 202109

REACTIONS (1)
  - Cerebral haemangioma [Not Recovered/Not Resolved]

NARRATIVE: CASE EVENT DATE: 20220726
